FAERS Safety Report 5812115-1 (Version None)
Quarter: 2008Q3

REPORT INFORMATION
  Report Type: 
  Country: None (occurrence: None)
  Receive Date: 20080716
  Receipt Date: 20080707
  Transmission Date: 20090109
  Serious: Yes (Hospitalization)
  Sender: FDA-Public Use
  Company Number: JP-WATSON-2008-04040

PATIENT
  Age: 8 Year
  Sex: Male

DRUGS (2)
  1. FIORICET [Suspect]
     Indication: PYREXIA
     Dosage: 600 MG, THREE DIVIDED DOSES FOR 2 DAYS
     Route: 065
  2. CEFDINIR [Suspect]
     Indication: PYREXIA
     Dosage: 300 MG, THREE DIVIDED DOSES FOR 2 DAYS
     Route: 065

REACTIONS (2)
  - ERYTHEMA MULTIFORME [None]
  - VANISHING BILE DUCT SYNDROME [None]
